FAERS Safety Report 8038350-2 (Version None)
Quarter: 2012Q1

REPORT INFORMATION
  Report Type: 
  Country: None (occurrence: None)
  Receive Date: 20120111
  Receipt Date: 20111205
  Transmission Date: 20120608
  Serious: No
  Sender: FDA-Public Use
  Company Number: US-AMGEN-USASP2011047574

PATIENT
  Age: 77 Year
  Sex: Female
  Weight: 80.272 kg

DRUGS (1)
  1. ENBREL [Suspect]
     Indication: RHEUMATOID ARTHRITIS
     Dosage: 50 MG, QWK
     Route: 058
     Dates: start: 20110701

REACTIONS (3)
  - FALL [None]
  - HAEMATOMA [None]
  - CONTUSION [None]
